FAERS Safety Report 5323333-3 (Version None)
Quarter: 2007Q2

REPORT INFORMATION
  Report Type: 
  Country: None (occurrence: None)
  Receive Date: 20070220
  Receipt Date: 20070116
  Transmission Date: 20071010
  Serious: No
  Sender: FDA-Public Use
  Company Number: WAES 0701USA02089

PATIENT
  Sex: Male

DRUGS (6)
  1. JANUVIA [Suspect]
     Indication: BLOOD GLUCOSE ABNORMAL
     Dosage: 100 MG/DAILY/PO
     Route: 048
     Dates: start: 20061222
  2. ACTOS [Concomitant]
  3. LOTREL [Concomitant]
  4. TOPROL-XL [Concomitant]
  5. BENAZEPRIL HYDROCHLORIDE [Concomitant]
  6. METFORMIN HCL [Concomitant]

REACTIONS (4)
  - DRUG ADMINISTRATION ERROR [None]
  - FEELING ABNORMAL [None]
  - FLATULENCE [None]
  - SOMNOLENCE [None]
